FAERS Safety Report 5642062-X (Version None)
Quarter: 2008Q1

REPORT INFORMATION
  Report Type: 
  Country: None (occurrence: None)
  Receive Date: 20080131
  Receipt Date: 20071101
  Transmission Date: 20080703
  Serious: No
  Sender: FDA-Public Use
  Company Number: 163-21880-07110175

PATIENT
  Age: 75 Year
  Sex: Male

DRUGS (12)
  1. REVLIMID [Suspect]
     Indication: MULTIPLE MYELOMA
     Dosage: 5, 10  MG, 1 IN 1 D, ORAL
     Route: 048
     Dates: start: 20060811, end: 20070901
  2. REVLIMID [Suspect]
     Indication: MULTIPLE MYELOMA
     Dosage: 5, 10  MG, 1 IN 1 D, ORAL
     Route: 048
     Dates: start: 20070909, end: 20071004
  3. REVLIMID [Suspect]
     Indication: MULTIPLE MYELOMA
     Dosage: 5, 10  MG, 1 IN 1 D, ORAL
     Route: 048
     Dates: start: 20071008
  4. ZETIA [Concomitant]
  5. PLAVIX [Concomitant]
  6. OMEPRAZOLE [Concomitant]
  7. COZAAR [Concomitant]
  8. LEVITRA [Concomitant]
  9. ZOLPIDEM [Concomitant]
  10. DEXAMETHASONE TAB [Concomitant]
  11. AREDIA [Concomitant]
  12. TESTOSTERONE [Concomitant]

REACTIONS (5)
  - DEPRESSION [None]
  - DIARRHOEA [None]
  - INSOMNIA [None]
  - MUSCLE SPASMS [None]
  - NEUROPATHY PERIPHERAL [None]
